FAERS Safety Report 23275452 (Version 1)
Quarter: 2023Q4

REPORT INFORMATION
  Report Type: Spontaneous
  Country: US (occurrence: US)
  Receive Date: 20231208
  Receipt Date: 20231208
  Transmission Date: 20240109
  Serious: Yes (Other)
  Sender: FDA-Public Use
  Company Number: US-AUROBINDO-AUR-APL-2023-077165

PATIENT
  Age: 37 Year
  Sex: Male

DRUGS (3)
  1. NIACIN [Suspect]
     Active Substance: NIACIN
     Indication: Hypo HDL cholesterolaemia
     Dosage: 1 GRAM, ONCE A DAY
     Route: 065
  2. SIMVASTATIN [Suspect]
     Active Substance: SIMVASTATIN
     Indication: Hypercholesterolaemia
     Dosage: 20 MILLIGRAM, ONCE A DAY
     Route: 065
  3. SIMVASTATIN [Suspect]
     Active Substance: SIMVASTATIN
     Indication: Arteriosclerosis coronary artery

REACTIONS (1)
  - Drug ineffective [Unknown]
